FAERS Safety Report 16400607 (Version 2)
Quarter: 2019Q2

REPORT INFORMATION
  Report Type: Spontaneous
  Country: JP (occurrence: JP)
  Receive Date: 20190606
  Receipt Date: 20190627
  Transmission Date: 20190711
  Serious: Yes (Other)
  Sender: FDA-Public Use
  Company Number: JP-SEATTLE GENETICS-2019SGN01958

PATIENT
  Age: 9 Decade

DRUGS (1)
  1. ADCETRIS [Suspect]
     Active Substance: BRENTUXIMAB VEDOTIN
     Indication: ANAPLASTIC LARGE-CELL LYMPHOMA
     Dosage: UNK
     Route: 041
     Dates: start: 201810

REACTIONS (3)
  - Skin disorder [Unknown]
  - Anaplastic large-cell lymphoma [Unknown]
  - Disease progression [Unknown]

NARRATIVE: CASE EVENT DATE: 201904
